FAERS Safety Report 20912122 (Version 4)
Quarter: 2025Q3

REPORT INFORMATION
  Report Type: Report from Study
  Country: US (occurrence: US)
  Receive Date: 20220603
  Receipt Date: 20250710
  Transmission Date: 20251021
  Serious: Yes (Hospitalization)
  Sender: JAZZ
  Company Number: US-GW PHARMA-202111USGW05674

PATIENT
  Sex: Female
  Weight: 47.166 kg

DRUGS (5)
  1. EPIDIOLEX [Suspect]
     Active Substance: CANNABIDIOL
     Indication: Lennox-Gastaut syndrome
     Dosage: 10.18 MG/KG/DAY, 240 MILLIGRAM, BID
     Dates: start: 20210310
  2. EPIDIOLEX [Suspect]
     Active Substance: CANNABIDIOL
     Indication: Status epilepticus
  3. EPIDIOLEX [Suspect]
     Active Substance: CANNABIDIOL
     Dosage: 3.8 MILLILITER, BID
     Dates: start: 202112
  4. EPIDIOLEX [Suspect]
     Active Substance: CANNABIDIOL
     Dosage: 3.8 MILLILITER, BID, G-TUBE
     Dates: start: 202112
  5. EPIDIOLEX [Suspect]
     Active Substance: CANNABIDIOL
     Dosage: 3.8 MILLILITER, BID, G-TUBE
     Dates: start: 202112

REACTIONS (2)
  - Hospitalisation [Unknown]
  - Emergency care [Unknown]
